FAERS Safety Report 9837803 (Version 1)
Quarter: 2014Q1

REPORT INFORMATION
  Report Type: Spontaneous
  Country: US (occurrence: None)
  Receive Date: 20140117
  Receipt Date: 20140117
  Transmission Date: 20141002
  Serious: Yes (Other)
  Sender: FDA-Public Use
  Company Number: None

PATIENT
  Age: 59 Year
  Sex: Female

DRUGS (1)
  1. CIMZIA [Suspect]
     Indication: CROHN^S DISEASE
     Dosage: 2 SYRINGES  EVERY 4 WEEKS  SUBCUTANEOUS
     Route: 058
     Dates: start: 20120913, end: 20140116

REACTIONS (2)
  - Stomatitis [None]
  - Skin discolouration [None]
